FAERS Safety Report 9602740 (Version 2)
Quarter: 2013Q4

REPORT INFORMATION
  Report Type: Spontaneous
  Country: FR (occurrence: FR)
  Receive Date: 20131007
  Receipt Date: 20131114
  Transmission Date: 20140711
  Serious: Yes (Other)
  Sender: FDA-Public Use
  Company Number: FR-BIOMARINAP-FR-2013-101633

PATIENT
  Age: 3 Year
  Sex: Male
  Weight: 19 kg

DRUGS (1)
  1. ALDURAZYME [Suspect]
     Indication: MUCOPOLYSACCHARIDOSIS I
     Dosage: 100 IU, QW
     Route: 042
     Dates: start: 201010

REACTIONS (3)
  - Hydrocephalus [Not Recovered/Not Resolved]
  - Nervous system disorder [Unknown]
  - Musculoskeletal disorder [Unknown]
